FAERS Safety Report 7206179-0 (Version None)
Quarter: 2010Q4

REPORT INFORMATION
  Report Type: 
  Country: None (occurrence: None)
  Receive Date: 20101221
  Receipt Date: 20101207
  Transmission Date: 20110411
  Serious: Yes (Death)
  Sender: FDA-Public Use
  Company Number: 2010005376

PATIENT
  Age: 47 Year
  Sex: Male

DRUGS (6)
  1. ERLOTINIB (ERLOTINIB) (TABLET) (ERLOTINIB) [Suspect]
     Indication: NON-SMALL CELL LUNG CANCER
     Dosage: 150 MG, QD, ORAL
     Route: 048
     Dates: start: 20090130, end: 20090221
  2. METFORMIN HCL [Concomitant]
  3. AMARYL [Concomitant]
  4. ZOLPIDEM TARTRATE [Concomitant]
  5. APETROL [Concomitant]
  6. MYPOL [Concomitant]

REACTIONS (1)
  - PNEUMONIA [None]
